FAERS Safety Report 9560957 (Version 1)
Quarter: 2013Q3

REPORT INFORMATION
  Report Type: Spontaneous
  Country: US (occurrence: US)
  Receive Date: 20130927
  Receipt Date: 20130927
  Transmission Date: 20140515
  Serious: No
  Sender: FDA-Public Use
  Company Number: US-BIOGENIDEC-2013BI055643

PATIENT
  Age: 43 Year
  Sex: Female

DRUGS (7)
  1. TECFIDERA [Suspect]
     Indication: MULTIPLE SCLEROSIS
     Route: 048
     Dates: start: 20130601, end: 20130607
  2. TECFIDERA [Suspect]
     Indication: MULTIPLE SCLEROSIS
     Route: 048
     Dates: start: 20130608
  3. HYDROCHLOROTHIAZIDE [Concomitant]
  4. VITAMIN C [Concomitant]
  5. BALZIVA 28 [Concomitant]
  6. VITAMIN D [Concomitant]
  7. OVCON-35 28 [Concomitant]

REACTIONS (3)
  - Rash [Not Recovered/Not Resolved]
  - Pruritus [Unknown]
  - Flushing [Unknown]
